FAERS Safety Report 15533973 (Version 2)
Quarter: 2018Q4

REPORT INFORMATION
  Report Type: Spontaneous
  Country: BR (occurrence: BR)
  Receive Date: 20181019
  Receipt Date: 20181109
  Transmission Date: 20190205
  Serious: Yes (Hospitalization, Other)
  Sender: FDA-Public Use
  Company Number: BR-009507513-1810BRA006996

PATIENT
  Age: 69 Year
  Sex: Female
  Weight: 69 kg

DRUGS (3)
  1. VYTORIN [Suspect]
     Active Substance: EZETIMIBE\SIMVASTATIN
     Dosage: 10/20 MG
     Route: 048
     Dates: start: 2008, end: 201611
  2. DIOVAN HCT [Concomitant]
     Active Substance: HYDROCHLOROTHIAZIDE\VALSARTAN
     Indication: HYPERTENSION
     Dosage: TOTAL DAILY DOSE: 160/12.5 MG 1 TABLET DAILY
     Route: 048
     Dates: start: 2008
  3. LEVOID [Concomitant]
     Active Substance: LEVOTHYROXINE
     Indication: HYPOTHYROIDISM
     Dosage: 50 MICROGRAM,(1 TABLET) QD
     Route: 048
     Dates: start: 2008

REACTIONS (2)
  - Cardiac disorder [Unknown]
  - Venous occlusion [Recovered/Resolved]

NARRATIVE: CASE EVENT DATE: 2016
